FAERS Safety Report 8359605-8 (Version None)
Quarter: 2012Q1

REPORT INFORMATION
  Report Type: 
  Country: None (occurrence: None)
  Receive Date: 20120315
  Receipt Date: 20110223
  Transmission Date: 20120608
  Serious: Yes (Other)
  Sender: FDA-Public Use
  Company Number: PHHY2011US11732

PATIENT
  Age: 52 Year
  Sex: Male
  Weight: 105 kg

DRUGS (6)
  1. BUPROPION HCL [Concomitant]
  2. CITALOPRAM HYDROBROMIDE [Concomitant]
  3. REBIF [Concomitant]
  4. OXYBUTYNIN [Concomitant]
  5. GILENYA [Suspect]
     Indication: MULTIPLE SCLEROSIS
     Dosage: 0.5 MG, QD, ORAL
     Route: 048
     Dates: start: 20110204
  6. VIAGRA [Concomitant]

REACTIONS (2)
  - HEART RATE DECREASED [None]
  - BLOOD PRESSURE DIASTOLIC INCREASED [None]
